FAERS Safety Report 7383052-9 (Version None)
Quarter: 2011Q1

REPORT INFORMATION
  Report Type: 
  Country: None (occurrence: None)
  Receive Date: 20110330
  Receipt Date: 20110325
  Transmission Date: 20110831
  Serious: Yes (Other)
  Sender: FDA-Public Use
  Company Number: US-PFIZER INC-2011050975

PATIENT
  Sex: Female
  Weight: 58 kg

DRUGS (4)
  1. CHANTIX [Suspect]
     Indication: SMOKING CESSATION THERAPY
     Dosage: 0.5 MG, 1X/DAY
     Route: 048
     Dates: start: 20110302, end: 20110301
  2. ADDERALL 10 [Concomitant]
     Indication: ATTENTION DEFICIT/HYPERACTIVITY DISORDER
     Dosage: 15 MG, BID
     Dates: start: 20030605
  3. TRAZODONE [Concomitant]
     Indication: SLEEP DISORDER
     Dosage: 75 UNK, UNK
     Dates: start: 20101101, end: 20110301
  4. CHANTIX [Suspect]
     Dosage: 0.5 MG, 2X/DAY
     Dates: start: 20110304

REACTIONS (1)
  - HAEMATOCHEZIA [None]
